FAERS Safety Report 10945131 (Version 1)
Quarter: 2015Q1

REPORT INFORMATION
  Report Type: Spontaneous
  Country: US (occurrence: None)
  Receive Date: 20150226
  Receipt Date: 20150226
  Transmission Date: 20150721
  Serious: No
  Sender: FDA-Public Use
  Company Number: TPA2010A00301

PATIENT
  Age: 51 Year
  Sex: Male
  Weight: 101.15 kg

DRUGS (4)
  1. ULORIC [Suspect]
     Active Substance: FEBUXOSTAT
     Indication: GOUT
     Route: 048
     Dates: start: 200909, end: 20091005
  2. TOPROL XL [Concomitant]
     Active Substance: METOPROLOL SUCCINATE
  3. PROBENECID. [Concomitant]
     Active Substance: PROBENECID
  4. COLCHICINE. [Concomitant]
     Active Substance: COLCHICINE

REACTIONS (4)
  - Throat tightness [None]
  - Tonsillar hypertrophy [None]
  - Rash [None]
  - Dysphagia [None]

NARRATIVE: CASE EVENT DATE: 20091005
